FAERS Safety Report 10158532 (Version 2)
Quarter: 2014Q2

REPORT INFORMATION
  Report Type: Report from Study
  Country: CA (occurrence: CA)
  Receive Date: 20140507
  Receipt Date: 20140611
  Transmission Date: 20141212
  Serious: Yes (Hospitalization, Other)
  Sender: FDA-Public Use
  Company Number: PHHY2014CA055172

PATIENT
  Age: 65 Year
  Sex: Female

DRUGS (3)
  1. CLOZARIL [Suspect]
     Indication: SCHIZOPHRENIA
     Dosage: 150 MG, AT BED TIME
     Dates: start: 20140331, end: 20140501
  2. ABILIFY [Concomitant]
  3. REMERON [Concomitant]

REACTIONS (8)
  - Generalised oedema [Recovering/Resolving]
  - Blood albumin decreased [Recovering/Resolving]
  - Pancreatitis acute [Recovering/Resolving]
  - Lethargy [Recovering/Resolving]
  - Diarrhoea [Recovering/Resolving]
  - Nausea [Recovering/Resolving]
  - Vomiting [Recovering/Resolving]
  - Body temperature increased [Recovering/Resolving]
